FAERS Safety Report 6610289-6 (Version None)
Quarter: 2010Q1

REPORT INFORMATION
  Report Type: 
  Country: None (occurrence: None)
  Receive Date: 20100218
  Receipt Date: 20091218
  Transmission Date: 20100710
  Serious: Yes (Other)
  Sender: FDA-Public Use
  Company Number: AUR-APL-2009-01684

PATIENT
  Age: 71 Year
  Weight: 90.7 kg

DRUGS (10)
  1. HYDROCHLOROTHIAZIDE [Suspect]
     Indication: OEDEMA PERIPHERAL
     Dosage: ORAL
     Route: 048
  2. CADUET [Suspect]
     Indication: HYPERTENSION
     Dosage: ORAL
     Route: 048
  3. TOPROL-XL [Suspect]
  4. ACTOS [Concomitant]
  5. ATENOLOL [Concomitant]
  6. LISINOPRIL [Concomitant]
  7. COSOPT [Concomitant]
  8. TRAVATAN [Concomitant]
  9. ALPHAGAN [Concomitant]
  10. ZETIA [Concomitant]

REACTIONS (3)
  - FLATULENCE [None]
  - OEDEMA PERIPHERAL [None]
  - RENAL IMPAIRMENT [None]
